FAERS Safety Report 25473192 (Version 1)
Quarter: 2025Q2

REPORT INFORMATION
  Report Type: Spontaneous
  Country: US (occurrence: US)
  Receive Date: 20250624
  Receipt Date: 20250624
  Transmission Date: 20250716
  Serious: Yes (Hospitalization)
  Sender: CSL BEHRING
  Company Number: US-BEH-2025210028

PATIENT
  Age: 70 Year
  Sex: Male
  Weight: 136.05 kg

DRUGS (1)
  1. ZEMAIRA [Suspect]
     Active Substance: .ALPHA.1-PROTEINASE INHIBITOR HUMAN
     Indication: Alpha-1 antitrypsin deficiency
     Dosage: UNK, QW
     Route: 042

REACTIONS (2)
  - Urinary tract infection [Recovering/Resolving]
  - Sepsis [Recovering/Resolving]
